FAERS Safety Report 24657947 (Version 1)
Quarter: 2024Q4

REPORT INFORMATION
  Report Type: Spontaneous
  Country: US (occurrence: US)
  Receive Date: 20241125
  Receipt Date: 20241125
  Transmission Date: 20250114
  Serious: Yes (Other)
  Sender: SANDOZ
  Company Number: US-SANDOZ-SDZ2024US096671

PATIENT
  Sex: Female

DRUGS (2)
  1. RECLAST [Suspect]
     Active Substance: ZOLEDRONIC ACID
     Indication: Product used for unknown indication
     Dosage: UNK
     Route: 065
     Dates: start: 20241115
  2. CORTISONE [Concomitant]
     Active Substance: CORTISONE
     Indication: Product used for unknown indication
     Dosage: UNK
     Route: 065

REACTIONS (8)
  - Craniofacial fracture [Unknown]
  - Loss of consciousness [Unknown]
  - Lip injury [Unknown]
  - Swelling face [Unknown]
  - Haemorrhage [Unknown]
  - Influenza like illness [Unknown]
  - Nausea [Unknown]
  - Abdominal pain upper [Unknown]
